FAERS Safety Report 8001614-2 (Version None)
Quarter: 2011Q4

REPORT INFORMATION
  Report Type: 
  Country: None (occurrence: None)
  Receive Date: 20111222
  Receipt Date: 20111207
  Transmission Date: 20120403
  Serious: Yes (Death)
  Sender: FDA-Public Use
  Company Number: FR-ROCHE-1020223

PATIENT
  Sex: Female

DRUGS (8)
  1. CLONAZEPAM [Suspect]
     Indication: PRODUCT USED FOR UNKNOWN INDICATION
     Route: 064
     Dates: start: 20090623, end: 20090828
  2. NOZINAN (UNITED KINGDOM) [Suspect]
     Indication: PRODUCT USED FOR UNKNOWN INDICATION
     Route: 064
  3. LEPTICUR [Suspect]
     Indication: PRODUCT USED FOR UNKNOWN INDICATION
     Route: 064
     Dates: start: 20090220, end: 20090828
  4. DEPAKOTE [Concomitant]
  5. HALDOL [Suspect]
     Indication: PRODUCT USED FOR UNKNOWN INDICATION
     Route: 064
  6. TEGRETOL [Concomitant]
     Indication: PRODUCT USED FOR UNKNOWN INDICATION
     Route: 064
     Dates: start: 20090220
  7. CHLORPROMAZINE HCL [Suspect]
     Indication: PRODUCT USED FOR UNKNOWN INDICATION
     Route: 064
     Dates: start: 20090623, end: 20090828
  8. LOXAPINE HCL [Suspect]
     Indication: PRODUCT USED FOR UNKNOWN INDICATION
     Route: 064
     Dates: start: 20090220, end: 20090828

REACTIONS (5)
  - CHORIOAMNIONITIS [None]
  - CONGENITAL MUSCULOSKELETAL ANOMALY [None]
  - OEDEMA [None]
  - INTRA-UTERINE DEATH [None]
  - PLACENTAL INFARCTION [None]
